FAERS Safety Report 13905800 (Version 1)
Quarter: 2017Q3

REPORT INFORMATION
  Report Type: Spontaneous
  Country: US (occurrence: US)
  Receive Date: 20170825
  Receipt Date: 20170825
  Transmission Date: 20171127
  Serious: No
  Sender: FDA-Public Use
  Company Number: US-GLAXOSMITHKLINE-US2017GSK129307

PATIENT
  Sex: Male

DRUGS (1)
  1. LOVAZA [Suspect]
     Active Substance: OMEGA-3-ACID ETHYL ESTERS
     Indication: HYPOTHYROIDISM
     Dosage: 1 G, UNK

REACTIONS (3)
  - Underdose [Unknown]
  - Drug dispensing error [Unknown]
  - Product use in unapproved indication [Unknown]
